FAERS Safety Report 10366751 (Version 2)
Quarter: 2014Q3

REPORT INFORMATION
  Report Type: Spontaneous
  Country: CA (occurrence: CA)
  Receive Date: 20140806
  Receipt Date: 20140908
  Transmission Date: 20150326
  Serious: Yes (Death, Other)
  Sender: FDA-Public Use
  Company Number: CA-GILEAD-2014-0110829

PATIENT
  Age: 34 Year
  Sex: Female

DRUGS (1)
  1. SOVALDI [Suspect]
     Active Substance: SOFOSBUVIR
     Indication: HEPATITIS C
     Dosage: UNK
     Route: 065
     Dates: start: 20140712, end: 20140720

REACTIONS (1)
  - Multi-organ failure [Fatal]
